FAERS Safety Report 7907617-8 (Version None)
Quarter: 2011Q4

REPORT INFORMATION
  Report Type: 
  Country: None (occurrence: None)
  Receive Date: 20111110
  Receipt Date: 20111104
  Transmission Date: 20120403
  Serious: Yes (Other)
  Sender: FDA-Public Use
  Company Number: PHHY2011MX098091

PATIENT
  Sex: Female

DRUGS (4)
  1. CORDARONE [Concomitant]
  2. LOPRESSOR [Concomitant]
  3. DIOVAN HCT [Suspect]
     Indication: HYPERTENSION
     Dosage: 1 DF(160/25 MG), DAILY
     Dates: start: 20090701
  4. ASPIRIN [Concomitant]

REACTIONS (1)
  - FALL [None]
